FAERS Safety Report 6599665-8 (Version None)
Quarter: 2010Q1

REPORT INFORMATION
  Report Type: 
  Country: None (occurrence: None)
  Receive Date: 20100224
  Receipt Date: 20100215
  Transmission Date: 20100710
  Serious: Yes (Hospitalization, Other)
  Sender: FDA-Public Use
  Company Number: DE-ELI_LILLY_AND_COMPANY-DE201002004038

PATIENT
  Sex: Male

DRUGS (4)
  1. ZYPADHERA [Suspect]
     Indication: DELUSIONAL DISORDER, UNSPECIFIED TYPE
     Dosage: 300 MG, UNKNOWN
     Route: 030
     Dates: start: 20091207
  2. ZYPADHERA [Suspect]
     Dosage: 210 MG, UNKNOWN
     Route: 030
  3. ZYPADHERA [Suspect]
     Dosage: 150 MG, UNKNOWN
     Route: 030
     Dates: end: 20100215
  4. ZYPREXA [Suspect]
     Dosage: 7.5 MG, DAILY (1/D)
     Route: 048

REACTIONS (2)
  - INSOMNIA [None]
  - MYOCLONUS [None]
